FAERS Safety Report 17973622 (Version 1)
Quarter: 2020Q3

REPORT INFORMATION
  Report Type: Spontaneous
  Country: US (occurrence: US)
  Receive Date: 20200701
  Receipt Date: 20200701
  Transmission Date: 20201103
  Serious: No
  Sender: FDA-Public Use
  Company Number: None

PATIENT
  Sex: Female

DRUGS (1)
  1. CRINONE [Suspect]
     Active Substance: PROGESTERONE
     Indication: INFERTILITY FEMALE
     Dosage: ?          OTHER DOSE:ONE APPLICATOR ;?
     Route: 067
     Dates: start: 202003

REACTIONS (3)
  - Drug hypersensitivity [None]
  - Paraesthesia [None]
  - Muscle spasms [None]
